FAERS Safety Report 11119715 (Version 1)
Quarter: 2015Q2

REPORT INFORMATION
  Report Type: Spontaneous
  Country: US (occurrence: None)
  Receive Date: 20150515
  Receipt Date: 20150515
  Transmission Date: 20150821
  Serious: No
  Sender: FDA-Public Use
  Company Number: None

PATIENT
  Age: 62 Year
  Sex: Female
  Weight: 176.9 kg

DRUGS (11)
  1. OXYBUTYNIN [Concomitant]
     Active Substance: OXYBUTYNIN
  2. FELODIPIN [Concomitant]
     Active Substance: FELODIPINE
  3. LOSARTAN/HCT [Concomitant]
     Active Substance: HYDROCHLOROTHIAZIDE\LOSARTAN POTASSIUM
  4. GLUCOSAMINE HCI [Concomitant]
  5. SPRIONOLACT [Concomitant]
  6. MSM [Concomitant]
     Active Substance: DIMETHYL SULFONE
  7. SOMA [Suspect]
     Active Substance: CARISOPRODOL
     Indication: ARTHRALGIA
     Route: 048
  8. FLUTICASONE SPR [Concomitant]
  9. NORCO [Concomitant]
     Active Substance: ACETAMINOPHEN\HYDROCODONE BITARTRATE
  10. FISH OIL [Concomitant]
     Active Substance: FISH OIL
  11. CENTRUM SILVER MULTIVITAMIN [Concomitant]

REACTIONS (8)
  - Arthropathy [None]
  - Product substitution issue [None]
  - Product quality issue [None]
  - Reaction to drug excipients [None]
  - Burning sensation [None]
  - Feeling jittery [None]
  - Drug ineffective [None]
  - Middle insomnia [None]

NARRATIVE: CASE EVENT DATE: 20150514
